FAERS Safety Report 6292145-9 (Version None)
Quarter: 2009Q3

REPORT INFORMATION
  Report Type: 
  Country: None (occurrence: None)
  Receive Date: 20090730
  Receipt Date: 20090730
  Transmission Date: 20100115
  Serious: Yes (Other)
  Sender: FDA-Public Use
  Company Number: None

PATIENT
  Sex: Male

DRUGS (1)
  1. CAPSAICIN CREAM [Suspect]
     Indication: PAIN
     Dosage: Q 12 H TOP
     Route: 061
     Dates: start: 20090726, end: 20090727

REACTIONS (3)
  - APPLICATION SITE IRRITATION [None]
  - APPLICATION SITE PAIN [None]
  - ERYTHEMA [None]
